FAERS Safety Report 5788338-7 (Version None)
Quarter: 2008Q2

REPORT INFORMATION
  Report Type: 
  Country: None (occurrence: None)
  Receive Date: 20080625
  Receipt Date: 20080613
  Transmission Date: 20081010
  Serious: Yes (Hospitalization)
  Sender: FDA-Public Use
  Company Number: CH-PFIZER INC-2008050029

PATIENT
  Age: 47 Year
  Sex: Female

DRUGS (3)
  1. CHANTIX [Suspect]
     Indication: TOBACCO ABUSE
     Route: 048
     Dates: start: 20080402, end: 20080419
  2. CYMBALTA [Suspect]
     Indication: DEPRESSION
     Route: 048
     Dates: start: 20070912, end: 20080419
  3. REMERON [Suspect]
     Indication: DEPRESSION
     Route: 048
     Dates: start: 20080113, end: 20080419

REACTIONS (4)
  - NAUSEA [None]
  - NERVOUSNESS [None]
  - SEROTONIN SYNDROME [None]
  - TREMOR [None]
